FAERS Safety Report 14008653 (Version 1)
Quarter: 2017Q3

REPORT INFORMATION
  Report Type: Spontaneous
  Country: US (occurrence: US)
  Receive Date: 20170925
  Receipt Date: 20170925
  Transmission Date: 20171128
  Serious: No
  Sender: FDA-Public Use
  Company Number: US-OREXO US, INC.-E2B_00000049

PATIENT
  Age: 36 Year
  Sex: Female
  Weight: 90.8 kg

DRUGS (15)
  1. LEVOTHYROXINE. [Concomitant]
     Active Substance: LEVOTHYROXINE
     Dosage: NOT PROVIDED
  2. ETHINYL ESTRADIOL / NORETHINDRONE [Concomitant]
     Dosage: NOT PROVIDED
  3. GABAPENTIN. [Concomitant]
     Active Substance: GABAPENTIN
     Dosage: NOT PROVIDED
  4. MODAFINIL. [Concomitant]
     Active Substance: MODAFINIL
     Indication: SLEEP DISORDER
     Dosage: NOT PROVIDED
  5. VILAZODONE [Concomitant]
     Active Substance: VILAZODONE
     Dosage: NOT PROVIDED
  6. TRIAMCINOLONE [Concomitant]
     Active Substance: TRIAMCINOLONE
     Dosage: NOT PROVIDED
  7. ALBUTEROL. [Concomitant]
     Active Substance: ALBUTEROL
     Indication: ASTHMA
     Dosage: NOT PROVIDED
  8. MELOXICAM. [Concomitant]
     Active Substance: MELOXICAM
     Dosage: NOT PROVIDED
  9. METOPROLOL. [Concomitant]
     Active Substance: METOPROLOL
     Dosage: NOT PROVIDED
  10. MIRALAX [Concomitant]
     Active Substance: POLYETHYLENE GLYCOL 3350
     Dosage: NOT PROVIDED
  11. ZUBSOLV [Suspect]
     Active Substance: BUPRENORPHINE HYDROCHLORIDE\NALOXONE HYDROCHLORIDE
     Indication: PAIN
  12. BUPROPION. [Concomitant]
     Active Substance: BUPROPION
     Indication: DEPRESSION
     Dosage: NOT PROVIDED
  13. ZUBSOLV [Suspect]
     Active Substance: BUPRENORPHINE HYDROCHLORIDE\NALOXONE HYDROCHLORIDE
     Indication: DRUG DEPENDENCE
     Dosage: 5.7 MG/1.4 MG TID
     Route: 060
     Dates: start: 20160121
  14. RANITIDINE. [Concomitant]
     Active Substance: RANITIDINE
     Dosage: NOT PROVIDED
  15. ACZONE [Concomitant]
     Active Substance: DAPSONE
     Dosage: NOT PROVIDED
     Route: 061

REACTIONS (1)
  - Off label use [Unknown]

NARRATIVE: CASE EVENT DATE: 20160121
